FAERS Safety Report 11119541 (Version 3)
Quarter: 2015Q4

REPORT INFORMATION
  Report Type: Spontaneous
  Country: US (occurrence: US)
  Receive Date: 20150518
  Receipt Date: 20151203
  Transmission Date: 20160304
  Serious: Yes (Hospitalization)
  Sender: FDA-Public Use
  Company Number: US-OTSUKA-DJ201502656

PATIENT
  Age: 17 Year
  Sex: Male

DRUGS (4)
  1. ARIPIPRAZOLE. [Suspect]
     Active Substance: ARIPIPRAZOLE
     Indication: AFFECTIVE DISORDER
     Dosage: 5 MG, UNK
     Route: 048
  2. LORAZEPAM. [Concomitant]
     Active Substance: LORAZEPAM
     Indication: PRODUCT USED FOR UNKNOWN INDICATION
     Dosage: UNK
     Route: 065
  3. LAMICTAL [Suspect]
     Active Substance: LAMOTRIGINE
     Indication: PRODUCT USED FOR UNKNOWN INDICATION
     Dosage: 25 MG, QD
  4. LAMICTAL [Suspect]
     Active Substance: LAMOTRIGINE
     Dosage: 50 MG, BID

REACTIONS (10)
  - Balance disorder [Unknown]
  - Abdominal discomfort [Unknown]
  - Cold sweat [Unknown]
  - Off label use [Unknown]
  - Gingival bleeding [Unknown]
  - Vision blurred [Unknown]
  - Fatigue [Unknown]
  - Motor dysfunction [Unknown]
  - Aggression [Unknown]
  - Hospitalisation [Unknown]

NARRATIVE: CASE EVENT DATE: 201503
